FAERS Safety Report 18906856 (Version 1)
Quarter: 2021Q1

REPORT INFORMATION
  Report Type: Spontaneous
  Country: US (occurrence: US)
  Receive Date: 20210217
  Receipt Date: 20210217
  Transmission Date: 20210420
  Serious: No
  Sender: FDA-Public Use
  Company Number: US-PFIZER INC-2021139067

PATIENT
  Age: 59 Year
  Sex: Female
  Weight: 65.76 kg

DRUGS (1)
  1. IBRANCE [Suspect]
     Active Substance: PALBOCICLIB
     Indication: BREAST CANCER
     Dosage: 125 MG, CYCLIC (1 DAILY FOR 21 DAYS)(7 DAY OFF PERIOD TO FINISH CYCLE)
     Route: 048
     Dates: start: 20201229

REACTIONS (4)
  - Nausea [Recovered/Resolved]
  - Fatigue [Unknown]
  - Discomfort [Unknown]
  - Product dose omission issue [Unknown]
